FAERS Safety Report 6020626-1 (Version None)
Quarter: 2008Q4

REPORT INFORMATION
  Report Type: 
  Country: None (occurrence: None)
  Receive Date: 20081222
  Receipt Date: 20081209
  Transmission Date: 20090506
  Serious: Yes (Other)
  Sender: FDA-Public Use
  Company Number: 2008AP003392

PATIENT
  Age: 56 Year
  Sex: Female

DRUGS (1)
  1. ALENDRONATE SODIUM [Suspect]
     Indication: OSTEOPOROSIS
     Dosage: 70 MG; QW PO
     Route: 048
     Dates: start: 20080829, end: 20081030

REACTIONS (4)
  - ARTHRALGIA [None]
  - DYSPEPSIA [None]
  - HEADACHE [None]
  - SCLERITIS [None]
